FAERS Safety Report 7984503-9 (Version None)
Quarter: 2011Q4

REPORT INFORMATION
  Report Type: 
  Country: None (occurrence: None)
  Receive Date: 20111123
  Receipt Date: 20110816
  Transmission Date: 20120403
  Serious: No
  Sender: FDA-Public Use
  Company Number: 334636

PATIENT
  Age: 50 Year
  Sex: Female

DRUGS (4)
  1. VICTOZA [Suspect]
     Indication: TYPE 2 DIABETES MELLITUS
     Dosage: 1.8 MG, QD, SUBCUTANEOUS ; 1.2 MG AND 3 CLICKS, QD, SUBCUTANEOUS
     Route: 058
     Dates: start: 20110802
  2. VICTOZA [Suspect]
     Indication: TYPE 2 DIABETES MELLITUS
     Dosage: 1.8 MG, QD, SUBCUTANEOUS ; 1.2 MG AND 3 CLICKS, QD, SUBCUTANEOUS
     Route: 058
     Dates: start: 20110601
  3. ZOFRAN /00955301/ (ONDANSETRON) [Concomitant]
  4. FINAGEN (FINASTERIDE) [Concomitant]

REACTIONS (3)
  - INJECTION SITE RASH [None]
  - INJECTION SITE ERYTHEMA [None]
  - NAUSEA [None]
